FAERS Safety Report 12500279 (Version 2)
Quarter: 2016Q2

REPORT INFORMATION
  Report Type: Spontaneous
  Country: FR (occurrence: FR)
  Receive Date: 20160627
  Receipt Date: 20160630
  Transmission Date: 20160815
  Serious: Yes (Life-Threatening, Other)
  Sender: FDA-Public Use
  Company Number: FR-PFIZER INC-2016308974

PATIENT
  Age: 17 Year
  Sex: Female

DRUGS (6)
  1. ZOPHREN /00955301/ [Concomitant]
     Active Substance: ONDANSETRON
     Dosage: 4 MG, UNK
  2. INEXIUM /01479302/ [Concomitant]
     Active Substance: ESOMEPRAZOLE MAGNESIUM
     Dosage: 40 MG, UNK
  3. PARACETAMOL [Concomitant]
     Active Substance: ACETAMINOPHEN
     Dosage: 1 G, UNK
  4. TRAMADOL. [Concomitant]
     Active Substance: TRAMADOL
     Dosage: 50 MG, UNK
  5. LIPIODOL [Concomitant]
     Active Substance: ETHIODIZED OIL
  6. RAPAMUNE [Suspect]
     Active Substance: SIROLIMUS
     Indication: HAMARTOMA VASCULAR
     Dosage: 2 MG, 2X/DAY
     Route: 048
     Dates: start: 20160517, end: 20160603

REACTIONS (5)
  - Haematemesis [Recovering/Resolving]
  - Cholecystitis acute [Recovered/Resolved]
  - Sepsis [Recovered/Resolved]
  - Product use issue [Unknown]
  - Shock haemorrhagic [Recovered/Resolved]

NARRATIVE: CASE EVENT DATE: 20160517
